FAERS Safety Report 9315217 (Version 2)
Quarter: 2013Q2

REPORT INFORMATION
  Report Type: Report from Study
  Country: JP (occurrence: JP)
  Receive Date: 20130529
  Receipt Date: 20130531
  Transmission Date: 20140414
  Serious: Yes (Other)
  Sender: FDA-Public Use
  Company Number: JP-B.I. PHARMACEUTICALS,INC./RIDGEFIELD-2013-BI-11286NB

PATIENT
  Age: 52 Year
  Sex: Male
  Weight: 75.4 kg

DRUGS (5)
  1. PRAZAXA [Suspect]
     Indication: CEREBROVASCULAR ACCIDENT PROPHYLAXIS
     Dosage: 220 MG
     Route: 048
     Dates: start: 20130104
  2. SUNRYTHM [Suspect]
     Indication: CARDIOVERSION
     Dosage: 150 MG
     Route: 048
     Dates: start: 20130104, end: 20130226
  3. DIART [Suspect]
     Dosage: 30 MG
     Route: 048
     Dates: start: 20130226
  4. ARTIST [Concomitant]
     Indication: ATRIAL FIBRILLATION
     Dosage: UNK
     Route: 048
     Dates: start: 20130104
  5. PIMOBENDAN [Concomitant]
     Dosage: UNK
     Route: 048
     Dates: start: 20130226

REACTIONS (4)
  - Cardiac failure [Recovered/Resolved]
  - Hyperuricaemia [Not Recovered/Not Resolved]
  - Blood cholesterol increased [Unknown]
  - Blood glucose decreased [Recovered/Resolved]
